FAERS Safety Report 9453046 (Version 3)
Quarter: 2013Q3

REPORT INFORMATION
  Report Type: Report from Study
  Country: US (occurrence: US)
  Receive Date: 20130812
  Receipt Date: 20130917
  Transmission Date: 20140515
  Serious: Yes (Other)
  Sender: FDA-Public Use
  Company Number: US-ROCHE-1258934

PATIENT
  Age: 55 Year
  Sex: Male

DRUGS (19)
  1. AVASTIN [Suspect]
     Indication: COLORECTAL CANCER
     Route: 042
     Dates: start: 20130715, end: 20130715
  2. AVASTIN [Suspect]
     Route: 042
     Dates: start: 20130730, end: 20130730
  3. AVASTIN [Suspect]
     Route: 042
     Dates: start: 20130813, end: 20130813
  4. KYTRIL [Suspect]
     Indication: PRODUCT USED FOR UNKNOWN INDICATION
     Route: 065
     Dates: start: 20130813
  5. KYTRIL [Suspect]
     Route: 065
     Dates: start: 20130730
  6. KYTRIL [Suspect]
     Route: 065
     Dates: start: 20130615
  7. FLUOROURACIL [Concomitant]
     Indication: COLON CANCER
     Dosage: 5852
     Route: 065
     Dates: start: 20130715
  8. FLUOROURACIL [Concomitant]
     Route: 065
     Dates: start: 20130730
  9. FLUOROURACIL [Concomitant]
     Route: 065
     Dates: start: 20130813
  10. OXALIPLATIN [Concomitant]
     Indication: COLON CANCER
     Dosage: 209
     Route: 065
     Dates: start: 20130615
  11. OXALIPLATIN [Concomitant]
     Route: 065
     Dates: start: 20130730
  12. OXALIPLATIN [Concomitant]
     Route: 065
     Dates: start: 20130813
  13. DEXAMETHASONE [Concomitant]
     Dosage: 10
     Route: 065
     Dates: start: 20130813
  14. LEUCOVORIN [Concomitant]
     Dosage: 638
     Route: 065
     Dates: start: 20130615
  15. LEUCOVORIN [Concomitant]
     Route: 065
     Dates: start: 20130730
  16. LEUCOVORIN [Concomitant]
     Route: 065
     Dates: start: 20130813
  17. DEXAMETHASONE SODIUM PHOSPHATE [Concomitant]
     Route: 065
     Dates: start: 20130615
  18. DEXAMETHASONE SODIUM PHOSPHATE [Concomitant]
     Route: 065
     Dates: start: 20130730
  19. DEXAMETHASONE SODIUM PHOSPHATE [Concomitant]
     Route: 065
     Dates: start: 20130813

REACTIONS (16)
  - Urinary tract obstruction [Unknown]
  - Blood alkaline phosphatase increased [Unknown]
  - Anxiety [Unknown]
  - Constipation [Unknown]
  - Fatigue [Unknown]
  - Lymphocyte count decreased [Unknown]
  - Nausea [Unknown]
  - Temperature intolerance [Recovered/Resolved]
  - Bacterial test [Unknown]
  - Paraesthesia [Unknown]
  - Heart rate increased [Unknown]
  - Mucosal inflammation [Unknown]
  - Pain [Unknown]
  - Angiopathy [Unknown]
  - Thrombosis [Unknown]
  - Varicose vein [Unknown]
